FAERS Safety Report 18456359 (Version 1)
Quarter: 2020Q4

REPORT INFORMATION
  Report Type: Spontaneous
  Country: US (occurrence: US)
  Receive Date: 20201103
  Receipt Date: 20201103
  Transmission Date: 20210114
  Serious: No
  Sender: FDA-Public Use
  Company Number: US-SA-2020SA305812

PATIENT

DRUGS (1)
  1. DUPIXENT [Suspect]
     Active Substance: DUPILUMAB
     Indication: PSORIASIS
     Dosage: UNK; (THEN 300 MG ON DAY 15, THEN EVERY OTHER WEEK THEREAFTER)
     Route: 058
     Dates: start: 20201020

REACTIONS (2)
  - Drug ineffective for unapproved indication [Unknown]
  - Dry eye [Unknown]

NARRATIVE: CASE EVENT DATE: 202010
